FAERS Safety Report 6106893-4 (Version None)
Quarter: 2009Q1

REPORT INFORMATION
  Report Type: 
  Country: None (occurrence: None)
  Receive Date: 20090305
  Receipt Date: 20090220
  Transmission Date: 20090719
  Serious: Yes (Other)
  Sender: FDA-Public Use
  Company Number: WAES0902USA00961

PATIENT
  Sex: Female

DRUGS (2)
  1. INDOMETHACIN [Suspect]
  2. HEPARIN [Concomitant]

REACTIONS (2)
  - CONDITION AGGRAVATED [None]
  - PURPURA [None]
